FAERS Safety Report 6256596-0 (Version None)
Quarter: 2009Q3

REPORT INFORMATION
  Report Type: 
  Country: None (occurrence: None)
  Receive Date: 20090706
  Receipt Date: 20090702
  Transmission Date: 20100115
  Serious: Yes (Other)
  Sender: FDA-Public Use
  Company Number: IT-JNJFOC-20090504127

PATIENT
  Sex: Female

DRUGS (5)
  1. SERENASE [Suspect]
     Indication: ABNORMAL BEHAVIOUR
     Route: 048
  2. EXELON [Suspect]
     Indication: DEMENTIA ALZHEIMER'S TYPE
     Route: 048
  3. SERPAX [Concomitant]
     Indication: DRUG USE FOR UNKNOWN INDICATION
     Route: 048
  4. ASPIRIN [Concomitant]
     Route: 048
  5. CITALOPRAM HYDROBROMIDE [Concomitant]
     Route: 048

REACTIONS (1)
  - TRANSIENT ISCHAEMIC ATTACK [None]
